FAERS Safety Report 6420814-6 (Version None)
Quarter: 2009Q4

REPORT INFORMATION
  Report Type: 
  Country: None (occurrence: None)
  Receive Date: 20091030
  Receipt Date: 20091019
  Transmission Date: 20100525
  Serious: Yes (Hospitalization)
  Sender: FDA-Public Use
  Company Number: US-SANOFI-SYNTHELABO-A03200904879

PATIENT
  Sex: Female
  Weight: 82.09 kg

DRUGS (12)
  1. NITROFURANTOIN [Concomitant]
     Indication: URINARY TRACT INFECTION
     Route: 065
     Dates: start: 20090801, end: 20090817
  2. VITAMIN B COMPLEX CAP [Concomitant]
     Indication: PROPHYLAXIS
     Dosage: UNK
     Route: 054
     Dates: end: 20090823
  3. ASCORBIC ACID [Concomitant]
     Indication: PROPHYLAXIS
     Dosage: UNK
     Route: 065
     Dates: end: 20090823
  4. VITAMIN D [Concomitant]
     Indication: PROPHYLAXIS
     Dosage: UNK
     Route: 065
     Dates: end: 20090823
  5. ASPIRIN [Concomitant]
     Indication: DRUG USE FOR UNKNOWN INDICATION
     Dosage: UNK
     Route: 065
  6. LISINOPRIL [Concomitant]
     Indication: HYPERTENSION
     Dosage: UNK
     Route: 065
  7. HYDROCHLOROTHIAZIDE [Concomitant]
     Indication: HYPERTENSION
     Dosage: UNK
     Route: 065
  8. SIMVASTATIN [Concomitant]
     Indication: HYPERCHOLESTEROLAEMIA
     Dosage: UNK
     Route: 065
  9. MIRALAX [Concomitant]
     Indication: CONSTIPATION
     Dosage: UNK
     Route: 065
  10. ZOLPIDEM [Suspect]
     Indication: INSOMNIA
     Dosage: UNK
     Route: 048
     Dates: start: 20090720, end: 20090801
  11. ZOLPIDEM [Suspect]
     Dosage: TOOK A 5 MG ON THE EVENING OF 17-AUG-2009 AND 19-AUG-2009
     Route: 048
     Dates: start: 20090817, end: 20090819
  12. MULTIVITAMIN PLUS IRON [Concomitant]
     Indication: PROPHYLAXIS
     Dosage: UNK
     Route: 065
     Dates: end: 20090823

REACTIONS (2)
  - ABDOMINAL PAIN LOWER [None]
  - DIVERTICULUM [None]
